FAERS Safety Report 14983513 (Version 2)
Quarter: 2018Q3

REPORT INFORMATION
  Report Type: Spontaneous
  Country: GR (occurrence: GR)
  Receive Date: 20180607
  Receipt Date: 20180802
  Transmission Date: 20181010
  Serious: Yes (Hospitalization)
  Sender: FDA-Public Use
  Company Number: PHHY2018GR012716

PATIENT
  Age: 48 Year
  Sex: Female

DRUGS (3)
  1. KISQALI [Suspect]
     Active Substance: RIBOCICLIB
     Indication: BREAST CANCER
     Dosage: 200 MG, (3 X 1) (21 DAYS, STOP 7 DAYS)
     Route: 065
     Dates: start: 20180418
  2. KISQALI [Suspect]
     Active Substance: RIBOCICLIB
     Dosage: 200 MG, 2*1 (21?DAY CYCLE)
     Route: 065
  3. LETROZOLE. [Suspect]
     Active Substance: LETROZOLE
     Indication: BREAST CANCER METASTATIC
     Dosage: UNK
     Route: 065
     Dates: start: 20180410

REACTIONS (12)
  - Pulmonary embolism [Recovering/Resolving]
  - Haematocrit decreased [Unknown]
  - Leukopenia [Unknown]
  - Inflammatory marker increased [Recovering/Resolving]
  - Febrile neutropenia [Recovering/Resolving]
  - Anaemia [Recovering/Resolving]
  - Haemodynamic instability [Recovering/Resolving]
  - Urinary tract infection [Recovering/Resolving]
  - Diarrhoea [Recovering/Resolving]
  - Respiratory failure [Recovering/Resolving]
  - Electrolyte imbalance [Recovering/Resolving]
  - Movement disorder [Unknown]
